FAERS Safety Report 8235016-0 (Version None)
Quarter: 2012Q1

REPORT INFORMATION
  Report Type: 
  Country: None (occurrence: None)
  Receive Date: 20120326
  Receipt Date: 20120320
  Transmission Date: 20120608
  Serious: Yes (Hospitalization)
  Sender: FDA-Public Use
  Company Number: US-GLAXOSMITHKLINE-A0913513A

PATIENT
  Age: 56 Year
  Sex: Female
  Weight: 113.6 kg

DRUGS (6)
  1. NORVASC [Concomitant]
  2. DYAZIDE [Concomitant]
  3. AVANDIA [Suspect]
     Indication: DIABETES MELLITUS
     Dosage: 4MG PER DAY
     Route: 048
     Dates: start: 20000301, end: 20070103
  4. DILANTIN [Concomitant]
  5. ENALAPRIL MALEATE [Concomitant]
  6. ZOCOR [Concomitant]

REACTIONS (5)
  - ARTERIOSCLEROSIS [None]
  - BASAL GANGLIA HAEMORRHAGE [None]
  - CORONARY ARTERY DISEASE [None]
  - CEREBROVASCULAR ACCIDENT [None]
  - TRANSIENT ISCHAEMIC ATTACK [None]
